FAERS Safety Report 7513481-1 (Version None)
Quarter: 2011Q2

REPORT INFORMATION
  Report Type: 
  Country: None (occurrence: None)
  Receive Date: 20110531
  Receipt Date: 20110518
  Transmission Date: 20111010
  Serious: Yes (Congenital Anomaly)
  Sender: FDA-Public Use
  Company Number: DE-MYLANLABS-2011S1010236

PATIENT
  Age: 0 Year
  Sex: Male
  Weight: 3.18 kg

DRUGS (1)
  1. TOPIRAMATE [Suspect]
     Indication: PRODUCT USED FOR UNKNOWN INDICATION
     Dosage: 100 [MG/D (2X50) ]
     Route: 064

REACTIONS (4)
  - HYPERTELORISM OF ORBIT [None]
  - DRUG EXPOSURE DURING PREGNANCY [None]
  - CLEFT LIP [None]
  - ATRIAL SEPTAL DEFECT [None]
